FAERS Safety Report 8915495 (Version 1)
Quarter: 2012Q4

REPORT INFORMATION
  Report Type: 
  Country: US (occurrence: US)
  Receive Date: 20121119
  Receipt Date: 20121119
  Transmission Date: 20130627
  Serious: No
  Sender: FDA-Public Use
  Company Number: US-PFIZER INC-2012288122

PATIENT
  Age: 49 Year
  Sex: Male
  Weight: 113 kg

DRUGS (7)
  1. GABAPENTIN [Suspect]
     Indication: NEUROPATHY
     Dosage: UNK
     Dates: start: 2008
  2. LAMOTRIGINE [Concomitant]
     Dosage: UNK
  3. ZOLOFT [Concomitant]
     Dosage: 100 mg, daily
  4. BUPROPION [Concomitant]
     Indication: ANXIETY
     Dosage: 150 mg, 2x/day
  5. FENOFIBRATE [Concomitant]
     Dosage: 200 mg, daily
  6. POTASSIUM [Concomitant]
     Dosage: UNK
  7. FISH OIL [Concomitant]
     Dosage: UNK

REACTIONS (2)
  - Feeling drunk [Unknown]
  - Lethargy [Recovered/Resolved]
